FAERS Safety Report 4567983-0 (Version None)
Quarter: 2005Q1

REPORT INFORMATION
  Report Type: 
  Country: None (occurrence: None)
  Receive Date: 20050131
  Receipt Date: 20050117
  Transmission Date: 20050727
  Serious: Yes (Hospitalization)
  Sender: FDA-Public Use
  Company Number: 2005-UK-00081UK

PATIENT
  Age: 82 Year
  Sex: Female

DRUGS (5)
  1. PERSANTIN [Suspect]
     Indication: CEREBROVASCULAR ACCIDENT
     Dosage: 200MG TWICE PO
     Route: 048
     Dates: end: 20041215
  2. ASPIRIN [Suspect]
     Indication: CEREBROVASCULAR ACCIDENT
     Dosage: 75 MG ONCE DAILY  PO
     Route: 048
     Dates: end: 20041215
  3. ATORVASTATIN (ATORVASTATIN) [Concomitant]
  4. FUROSEMIDE [Concomitant]
  5. LANSOPRAZOLE [Concomitant]

REACTIONS (1)
  - EPISTAXIS [None]
